FAERS Safety Report 24444009 (Version 3)
Quarter: 2024Q4

REPORT INFORMATION
  Report Type: Report from Study
  Country: CN (occurrence: CN)
  Receive Date: 20241016
  Receipt Date: 20241105
  Transmission Date: 20250114
  Serious: Yes (Hospitalization)
  Sender: NOVARTIS
  Company Number: CN-002147023-NVSC2024CN200958

PATIENT
  Sex: Female

DRUGS (1)
  1. KISQALI [Suspect]
     Active Substance: RIBOCICLIB
     Indication: Breast cancer
     Dosage: 400 MG, QD (THOUGH MOUTH CAVITY)
     Route: 048
     Dates: start: 20240614, end: 20241010

REACTIONS (6)
  - Erysipelas [Recovering/Resolving]
  - Pyrexia [Recovered/Resolved]
  - Swelling [Recovered/Resolved]
  - Pain [Unknown]
  - Dizziness [Unknown]
  - Retching [Unknown]

NARRATIVE: CASE EVENT DATE: 20240701
